FAERS Safety Report 7463630-9 (Version None)
Quarter: 2011Q2

REPORT INFORMATION
  Report Type: 
  Country: None (occurrence: None)
  Receive Date: 20110506
  Receipt Date: 20110504
  Transmission Date: 20111010
  Serious: Yes (Other)
  Sender: FDA-Public Use
  Company Number: ES-PFIZER INC-2011051260

PATIENT
  Age: 33 Year
  Sex: Female
  Weight: 93 kg

DRUGS (5)
  1. VARENICLINE TARTRATE [Suspect]
     Indication: SMOKING CESSATION THERAPY
     Dosage: UNK
     Route: 048
     Dates: start: 20110114
  2. SALBUTAMOL [Concomitant]
     Indication: ALLERGIC BRONCHITIS
     Dosage: UNK, AS NEEDED
     Route: 055
     Dates: start: 20110226, end: 20110226
  3. VARENICLINE TARTRATE [Suspect]
     Dosage: 0.5 MG, 2X/DAY
     Route: 048
     Dates: start: 20110302, end: 20110421
  4. CETIRIZINE [Concomitant]
     Dosage: 20 MG, UNK
     Route: 048
     Dates: start: 20110224, end: 20110226
  5. VARENICLINE TARTRATE [Suspect]
     Dosage: 1 MG, 2X/DAY
     Route: 048
     Dates: end: 20110224

REACTIONS (7)
  - DISTURBANCE IN ATTENTION [None]
  - DECREASED INTEREST [None]
  - METABOLIC DISORDER [None]
  - HYPERSOMNIA [None]
  - DRUG DEPENDENCE [None]
  - ASTHENIA [None]
  - SOMNOLENCE [None]
